FAERS Safety Report 12918574 (Version 2)
Quarter: 2016Q4

REPORT INFORMATION
  Report Type: Spontaneous
  Country: JP (occurrence: JP)
  Receive Date: 20161107
  Receipt Date: 20161117
  Transmission Date: 20170207
  Serious: Yes (Other)
  Sender: FDA-Public Use
  Company Number: JP-PFIZER INC-2016501598

PATIENT
  Age: 80 Year
  Sex: Male

DRUGS (3)
  1. CRAVIT [Suspect]
     Active Substance: LEVOFLOXACIN
     Dosage: 250 MG, DAILY
     Route: 042
     Dates: start: 20161018, end: 20161020
  2. ZOSYN [Suspect]
     Active Substance: PIPERACILLIN SODIUM\TAZOBACTAM SODIUM
     Indication: PNEUMONIA
     Dosage: 2.25 G, 2X/DAY
     Route: 041
     Dates: start: 20161020, end: 20161025
  3. CRAVIT [Suspect]
     Active Substance: LEVOFLOXACIN
     Dosage: 500 MG, DAILY
     Route: 042
     Dates: start: 20161017, end: 20161017

REACTIONS (3)
  - Oedema [Recovered/Resolved]
  - Dehydration [Recovered/Resolved]
  - Renal disorder [Recovered/Resolved]

NARRATIVE: CASE EVENT DATE: 20161021
